FAERS Safety Report 6133673-6 (Version None)
Quarter: 2009Q1

REPORT INFORMATION
  Report Type: 
  Country: None (occurrence: None)
  Receive Date: 20090326
  Receipt Date: 20090323
  Transmission Date: 20090719
  Serious: Yes (Hospitalization)
  Sender: FDA-Public Use
  Company Number: B0540116A

PATIENT
  Age: 48 Year
  Sex: Male

DRUGS (14)
  1. KIVEXA [Suspect]
     Indication: HIV INFECTION
     Route: 048
     Dates: start: 20080915, end: 20080927
  2. LAMIVUDINE [Concomitant]
     Route: 065
  3. VIRAMUNE [Concomitant]
     Route: 065
  4. TENOFOVIR [Concomitant]
     Route: 065
     Dates: end: 20080918
  5. PRAVASTATIN [Concomitant]
     Route: 065
  6. ISCOVER [Concomitant]
     Route: 065
  7. OMEPRAZOLE [Concomitant]
     Route: 065
  8. GABAPENTIN [Concomitant]
     Route: 065
  9. DEPRAX [Concomitant]
     Route: 065
  10. LIORESAL [Concomitant]
  11. DILTIAZEM [Concomitant]
     Route: 065
  12. NOCTAMID [Concomitant]
     Route: 065
  13. VIRAMUNE [Concomitant]
     Route: 065
  14. ALGIASDIN [Concomitant]
     Route: 065

REACTIONS (13)
  - ARTHRALGIA [None]
  - CIRCULATORY COLLAPSE [None]
  - CONFUSIONAL STATE [None]
  - COUGH [None]
  - DIZZINESS [None]
  - HYPERSENSITIVITY [None]
  - HYPOTENSION [None]
  - LYMPHADENOPATHY [None]
  - PAROTID GLAND ENLARGEMENT [None]
  - PAROTID GLAND INFLAMMATION [None]
  - PYREXIA [None]
  - RASH [None]
  - SOMNOLENCE [None]
